FAERS Safety Report 15700066 (Version 2)
Quarter: 2018Q4

REPORT INFORMATION
  Report Type: Report from Study
  Country: US (occurrence: US)
  Receive Date: 20181207
  Receipt Date: 20181227
  Transmission Date: 20190205
  Serious: Yes (Hospitalization)
  Sender: FDA-Public Use
  Company Number: US-PFIZER INC-2018497661

PATIENT
  Sex: Female
  Weight: 75 kg

DRUGS (10)
  1. DOXORUBICIN HCL [Suspect]
     Active Substance: DOXORUBICIN HYDROCHLORIDE
     Indication: B PRECURSOR TYPE ACUTE LEUKAEMIA
     Dosage: TOTAL DOSE ADMINISTERED THIS COURSE WAS 138 MG
     Dates: start: 20180918, end: 20181003
  2. DEXAMETHASONE. [Suspect]
     Active Substance: DEXAMETHASONE
     Indication: B PRECURSOR TYPE ACUTE LEUKAEMIA
     Dosage: TOTAL DOSE ADMINISTERED THIS COURSE WAS 126 MG
     Dates: start: 20180918, end: 20181009
  3. RITUXIMAB. [Suspect]
     Active Substance: RITUXIMAB
     Indication: B PRECURSOR TYPE ACUTE LEUKAEMIA
     Dosage: TOTAL DOSE ADMINISTERED THIS COURSE WAS 1380 MG
     Dates: start: 20180918, end: 20180926
  4. THIOGUANINE [Suspect]
     Active Substance: THIOGUANINE
     Indication: B PRECURSOR TYPE ACUTE LEUKAEMIA
     Dosage: TOTAL DOSE ADMINISTERED THIS COURSE WAS 1680 MG
     Dates: start: 20181024, end: 20181106
  5. VINCRISTINE SULFATE. [Suspect]
     Active Substance: VINCRISTINE SULFATE
     Indication: B PRECURSOR TYPE ACUTE LEUKAEMIA
     Dosage: TOTAL DOSE ADMINISTERED THIS COURSE WAS 8 MG
     Dates: start: 20180918, end: 20181111
  6. INOTUZUMAB OZOGAMICIN [Suspect]
     Active Substance: INOTUZUMAB OZOGAMICIN
     Indication: B PRECURSOR TYPE ACUTE LEUKAEMIA
     Dosage: TOTAL DOSE ADMINISTERED THIS COURSE WAS 0 MG
     Dates: start: 20171025, end: 20171206
  7. METHOTREXATE SODIUM. [Suspect]
     Active Substance: METHOTREXATE SODIUM
     Indication: B PRECURSOR TYPE ACUTE LEUKAEMIA
     Dosage: TOTAL DOSE ADMINISTERED THIS COURSE WAS 45 MG
     Dates: start: 20180918, end: 20181031
  8. PEGASPARGASE [Suspect]
     Active Substance: PEGASPARGASE
     Indication: B PRECURSOR TYPE ACUTE LEUKAEMIA
     Dosage: TOTAL DOSE ADMINISTERED THIS COURSE WAS 7425 UNIT
     Dates: start: 20180921, end: 20181111
  9. CYTARABINE. [Suspect]
     Active Substance: CYTARABINE
     Indication: B PRECURSOR TYPE ACUTE LEUKAEMIA
     Dosage: TOTAL DOSE ADMINISTERED THIS COURSE WAS 1120 MG
     Dates: start: 20181024, end: 20181103
  10. CYCLOPHOSPHAMIDE. [Suspect]
     Active Substance: CYCLOPHOSPHAMIDE
     Indication: B PRECURSOR TYPE ACUTE LEUKAEMIA
     Dosage: TOTAL DOSE ADMINISTERED THIS COURSE WAS 1860 MG
     Dates: start: 20181024, end: 20181024

REACTIONS (1)
  - Infection [Unknown]

NARRATIVE: CASE EVENT DATE: 20181109
